FAERS Safety Report 4411106-5 (Version None)
Quarter: 2004Q2

REPORT INFORMATION
  Report Type: 
  Country: None (occurrence: None)
  Receive Date: 20040630
  Receipt Date: 20040421
  Transmission Date: 20050107
  Serious: No
  Sender: FDA-Public Use
  Company Number: 04P-163-0258246-00

PATIENT
  Age: 53 Year
  Sex: Female
  Weight: 98.8842 kg

DRUGS (4)
  1. HUMIRA [Suspect]
     Indication: RHEUMATOID ARTHRITIS
     Dosage: 40 MG, SUBCUTANEOUS
     Route: 058
     Dates: start: 20040201
  2. PROVELLA-14 [Concomitant]
  3. OXYBUTYNIN [Concomitant]
  4. PROPOXYLENE [Concomitant]

REACTIONS (2)
  - DIZZINESS [None]
  - NAUSEA [None]
